FAERS Safety Report 9739253 (Version 1)
Quarter: 2013Q4

REPORT INFORMATION
  Report Type: Spontaneous
  Country: US (occurrence: US)
  Receive Date: 20131209
  Receipt Date: 20131209
  Transmission Date: 20140711
  Serious: No
  Sender: FDA-Public Use
  Company Number: US-TEVA-449730USA

PATIENT
  Sex: Female
  Weight: 53.57 kg

DRUGS (3)
  1. PARAGARD 380A [Suspect]
     Indication: CONTRACEPTION
     Route: 015
  2. CETALOPRAM [Concomitant]
     Indication: STRESS
     Dosage: 20 MILLIGRAM DAILY;
     Route: 048
  3. CETALOPRAM [Concomitant]
     Indication: ANXIETY

REACTIONS (1)
  - Device expulsion [Recovered/Resolved]
